FAERS Safety Report 20891899 (Version 3)
Quarter: 2022Q3

REPORT INFORMATION
  Report Type: Report from Study
  Country: US (occurrence: US)
  Receive Date: 20220530
  Receipt Date: 20220705
  Transmission Date: 20221027
  Serious: Yes (Other)
  Sender: FDA-Public Use
  Company Number: US-KYOWAKIRIN-2022BKK006414

PATIENT

DRUGS (1)
  1. CRYSVITA [Suspect]
     Active Substance: BUROSUMAB-TWZA
     Indication: Hereditary hypophosphataemic rickets
     Dosage: 80 MG,1X/4 WEEKS, EVERY 28 DAYS
     Route: 065
     Dates: start: 20180608

REACTIONS (2)
  - Hypertension [Not Recovered/Not Resolved]
  - Sinus tachycardia [Not Recovered/Not Resolved]
